FAERS Safety Report 4892279-7 (Version None)
Quarter: 2006Q1

REPORT INFORMATION
  Report Type: 
  Country: None (occurrence: None)
  Receive Date: 20060124
  Receipt Date: 20060111
  Transmission Date: 20060701
  Serious: Yes (Other)
  Sender: FDA-Public Use
  Company Number: PHBS2006IN00765

PATIENT
  Age: 55 Year
  Sex: Female

DRUGS (10)
  1. VISUDYNE [Suspect]
     Indication: TELANGIECTASIA
     Dates: start: 20051101, end: 20051101
  2. DOXYCYCLINE HCL [Concomitant]
  3. BIGOMET [Concomitant]
  4. ZORIL [Concomitant]
  5. ENAM [Concomitant]
  6. SHELCAL [Concomitant]
  7. TENOLOL [Concomitant]
  8. UNIENZYME [Concomitant]
  9. ANTOXID [Concomitant]
  10. VITAMIN B-12 [Concomitant]

REACTIONS (2)
  - DRY SKIN [None]
  - SKIN EXFOLIATION [None]
